FAERS Safety Report 7279361-4 (Version None)
Quarter: 2011Q1

REPORT INFORMATION
  Report Type: 
  Country: None (occurrence: None)
  Receive Date: 20110208
  Receipt Date: 20110127
  Transmission Date: 20110831
  Serious: Yes (Hospitalization)
  Sender: FDA-Public Use
  Company Number: JP-AMGEN-JPNSP2010010953

PATIENT
  Age: 68 Year
  Sex: Female
  Weight: 42 kg

DRUGS (16)
  1. ENBREL [Suspect]
     Indication: RHEUMATOID ARTHRITIS
     Dosage: 25 MG, WEEKLY
     Route: 058
     Dates: start: 20091120, end: 20101027
  2. RHEUMATREX [Suspect]
     Dosage: 4 MG, 1X/WEEK  2 MG, 2X/WEEK
     Route: 048
     Dates: start: 20100412, end: 20101103
  3. RHEUMATREX [Suspect]
     Dosage: 2 MG, 3X/WEEK
     Route: 048
     Dates: start: 20101104, end: 20101206
  4. FOLIAMIN [Concomitant]
     Indication: PROPHYLAXIS
     Dosage: 5 MG, 2X/WEEK
     Route: 048
     Dates: end: 20091210
  5. RHEUMATREX [Suspect]
     Dosage: 2 MG, 2X/WEEK
     Route: 048
     Dates: start: 20010911, end: 20020424
  6. RHEUMATREX [Suspect]
     Dosage: 2 MG, 3X/WEEK
     Route: 048
     Dates: start: 20020425, end: 20041013
  7. RHEUMATREX [Suspect]
     Dosage: 5 MG, 2X/WEEK  2.5 MG, 1X/WEEK
     Route: 048
     Dates: start: 20091023, end: 20091210
  8. RHEUMATREX [Suspect]
     Indication: RHEUMATOID ARTHRITIS
     Dosage: 2 MG, 3X/WEEK
     Route: 048
     Dates: start: 20000928, end: 20010910
  9. HYPEN [Concomitant]
     Indication: RHEUMATOID ARTHRITIS
     Dosage: 200 MG, 2X/DAY
     Route: 048
  10. RHEUMATREX [Suspect]
     Dosage: 4MG X1, 2MG X2/ WEEK
     Route: 048
     Dates: start: 20041014, end: 20090621
  11. RHEUMATREX [Suspect]
     Dosage: 5 MG, 1X/WEEK  2.5 MG, 2X/WEEK
     Route: 048
     Dates: start: 20091211, end: 20100411
  12. FOLIAMIN [Concomitant]
     Dosage: 5 MG, 3X/WEEK
     Route: 048
     Dates: start: 20091211, end: 20101205
  13. NORVASC [Concomitant]
     Dosage: 5 MG, 1X/DAY
     Route: 048
  14. RHEUMATREX [Suspect]
     Dosage: 5 MG, 1X/WEEK  2.5 MG, 2X/WEEK
     Route: 048
     Dates: start: 20090622, end: 20091022
  15. PARIET [Concomitant]
     Dosage: 10 MG, 1X/DAY
     Route: 048
  16. AMOBAN [Concomitant]
     Indication: INSOMNIA
     Dosage: 7.5 MG, 1X/DAY
     Route: 048
     Dates: start: 20100215

REACTIONS (1)
  - EXTRANODAL MARGINAL ZONE B-CELL LYMPHOMA (MALT TYPE) [None]
